FAERS Safety Report 4376774-5 (Version None)
Quarter: 2004Q2

REPORT INFORMATION
  Report Type: 
  Country: None (occurrence: None)
  Receive Date: 20040608
  Receipt Date: 20040526
  Transmission Date: 20050107
  Serious: Yes (Hospitalization)
  Sender: FDA-Public Use
  Company Number: HQWYE161002JUN04

PATIENT
  Age: 42 Year
  Sex: Female

DRUGS (4)
  1. RAPAMUNE [Suspect]
     Indication: IMMUNOSUPPRESSION
     Dosage: 3 MG 1X PER 1 DAY
  2. SIMULECT [Concomitant]
  3. PREDNISONE TAB [Concomitant]
  4. NEORAL [Concomitant]

REACTIONS (17)
  - ANAEMIA [None]
  - CRYPTOGENIC ORGANIZING PNEUMONIA [None]
  - CULTURE URINE POSITIVE [None]
  - DRUG TOXICITY [None]
  - ENTEROCOCCAL INFECTION [None]
  - GLOMERULONEPHRITIS FOCAL [None]
  - GOODPASTURE'S SYNDROME [None]
  - HAEMATURIA [None]
  - KIDNEY TRANSPLANT REJECTION [None]
  - MALAISE [None]
  - OEDEMA PERIPHERAL [None]
  - PULMONARY CONGESTION [None]
  - PULMONARY FIBROSIS [None]
  - PULMONARY HAEMORRHAGE [None]
  - PULMONARY TOXICITY [None]
  - PYREXIA [None]
  - RENAL FAILURE CHRONIC [None]
